FAERS Safety Report 6671077 (Version 2)
Quarter: 2013Q1

REPORT INFORMATION
  Report Type: Spontaneous
  Country: US (occurrence: US)
  Receive Date: 20080618
  Receipt Date: 20130220
  Transmission Date: 20140127
  Serious: Yes (Other)
  Sender: FDA-Public Use
  Company Number: US-ELI_LILLY_AND_COMPANY-US200806001249

PATIENT
  Sex: Female

DRUGS (5)
  1. HUMATROPE [Suspect]
     Indication: HYPOPITUITARISM
     Dosage: UNK, UNKNOWN
     Dates: start: 20040810, end: 2005
  2. HUMATROPE [Suspect]
     Dosage: 0.4 MG, UNK 4 CLICKS
     Dates: start: 2005
  3. HUMATROPE [Suspect]
     Dosage: 0.45 MG, UNKNOWN
  4. CYMBALTA [Suspect]
     Dosage: 1 D/F, UNK
     Dates: start: 2005
  5. POTASSIUM [Concomitant]

REACTIONS (16)
  - Syncope [Recovered/Resolved]
  - Paraesthesia [Recovered/Resolved]
  - Hypoaesthesia [Recovered/Resolved]
  - Drug ineffective [Not Recovered/Not Resolved]
  - Swelling [Not Recovered/Not Resolved]
  - Hyperhidrosis [Not Recovered/Not Resolved]
  - Breast enlargement [Not Recovered/Not Resolved]
  - Fluid retention [Not Recovered/Not Resolved]
  - Pain in extremity [Not Recovered/Not Resolved]
  - Hypertension [Recovered/Resolved]
  - Weight increased [Recovering/Resolving]
  - Vision blurred [Recovered/Resolved]
  - Dysentery [Recovered/Resolved]
  - Disturbance in attention [Recovered/Resolved]
  - Feeling hot [Not Recovered/Not Resolved]
  - Motor dysfunction [Not Recovered/Not Resolved]
